FAERS Safety Report 6052415-6 (Version None)
Quarter: 2009Q1

REPORT INFORMATION
  Report Type: 
  Country: None (occurrence: None)
  Receive Date: 20090121
  Receipt Date: 20080617
  Transmission Date: 20090719
  Serious: Yes (Other)
  Sender: FDA-Public Use
  Company Number: US-WYE-H04560108

PATIENT
  Sex: Female

DRUGS (15)
  1. PREMPRO [Suspect]
  2. ACTIVELLA [Suspect]
  3. CENESTIN [Suspect]
  4. CYCRIN [Suspect]
  5. ESTINYL [Suspect]
  6. ESTRACE [Suspect]
  7. ESTRATEST [Suspect]
  8. ESTROGENS SOL/INJ [Suspect]
  9. FEMHRT [Suspect]
  10. MEDROXYPROGESTERONE [Suspect]
  11. NORETHINDRONE ACETATE [Suspect]
  12. OGEN [Suspect]
  13. PREMARIN [Suspect]
  14. PROMETRIUM [Suspect]
  15. PROVERA [Suspect]

REACTIONS (1)
  - BREAST CANCER [None]
